FAERS Safety Report 18317997 (Version 1)
Quarter: 2020Q3

REPORT INFORMATION
  Report Type: Spontaneous
  Country: US (occurrence: US)
  Receive Date: 20200925
  Receipt Date: 20200925
  Transmission Date: 20201103
  Serious: Yes (Disabling)
  Sender: FDA-Public Use
  Company Number: None

PATIENT
  Age: 52 Year
  Sex: Female
  Weight: 52.2 kg

DRUGS (1)
  1. NATURE?THROID [Suspect]
     Active Substance: THYROID, PORCINE
     Indication: THYROID FUNCTION TEST ABNORMAL
     Dosage: ?          QUANTITY:1 TABLET(S);?
     Route: 048
     Dates: start: 20150601, end: 20200915

REACTIONS (3)
  - Thyroid hormones decreased [None]
  - Recalled product administered [None]
  - Product measured potency issue [None]

NARRATIVE: CASE EVENT DATE: 20200601
